FAERS Safety Report 25960404 (Version 1)
Quarter: 2025Q4

REPORT INFORMATION
  Report Type: Spontaneous
  Country: US (occurrence: US)
  Receive Date: 20251027
  Receipt Date: 20251027
  Transmission Date: 20260118
  Serious: No
  Sender: BIOGEN
  Company Number: US-BIOGEN-2087441

PATIENT
  Age: 46 Year
  Sex: Male

DRUGS (1)
  1. SKYCLARYS [Suspect]
     Active Substance: OMAVELOXOLONE
     Indication: Product used for unknown indication
     Dosage: PATIENT ON HOLD FROM SKYCLARYS UNTIL THE END OF 2025 OR THE START OF 2026.

REACTIONS (1)
  - Cardiac disorder [Unknown]
